FAERS Safety Report 22202902 (Version 1)
Quarter: 2023Q2

REPORT INFORMATION
  Report Type: Spontaneous
  Country: US (occurrence: None)
  Receive Date: 20230412
  Receipt Date: 20230412
  Transmission Date: 20230722
  Serious: No
  Sender: FDA-Public Use
  Company Number: None

PATIENT
  Age: 37 Year

DRUGS (1)
  1. TECFIDERA [Suspect]
     Active Substance: DIMETHYL FUMARATE
     Indication: Multiple sclerosis

REACTIONS (7)
  - Blindness [None]
  - Neuropathy peripheral [None]
  - Feeling abnormal [None]
  - Functional gastrointestinal disorder [None]
  - Sleep disorder [None]
  - Abdominal discomfort [None]
  - Flushing [None]

NARRATIVE: CASE EVENT DATE: 20230411
